FAERS Safety Report 16339581 (Version 2)
Quarter: 2019Q2

REPORT INFORMATION
  Report Type: Report from Study
  Country: US (occurrence: US)
  Receive Date: 20190521
  Receipt Date: 20190617
  Transmission Date: 20190711
  Serious: No
  Sender: FDA-Public Use
  Company Number: US-SA-2019SA138388

PATIENT
  Age: 63 Year
  Sex: Female

DRUGS (12)
  1. DUPILUMAB [Suspect]
     Active Substance: DUPILUMAB
     Dosage: 300 MG, QOW
     Route: 058
     Dates: start: 20190503, end: 20190503
  2. COSENTYX [Concomitant]
     Active Substance: SECUKINUMAB
  3. ALEVE [Concomitant]
     Active Substance: NAPROXEN SODIUM
  4. PREMARIN [Concomitant]
     Active Substance: ESTROGENS, CONJUGATED
  5. PREDNISONE. [Concomitant]
     Active Substance: PREDNISONE
  6. ADVIL [IBUPROFEN] [Concomitant]
     Active Substance: IBUPROFEN
  7. TRIAMCINOLONE ACETONIDE. [Concomitant]
     Active Substance: TRIAMCINOLONE ACETONIDE
  8. DUPILUMAB [Suspect]
     Active Substance: DUPILUMAB
     Indication: ECZEMA
     Dosage: 600 MG, 1X
     Route: 058
     Dates: start: 20190419, end: 20190419
  9. CYCLOSPORINE. [Concomitant]
     Active Substance: CYCLOSPORINE
  10. LISINOPRIL. [Concomitant]
     Active Substance: LISINOPRIL
  11. PAZEO [Concomitant]
     Active Substance: OLOPATADINE HYDROCHLORIDE
  12. DOXEPIN [Concomitant]
     Active Substance: DOXEPIN

REACTIONS (3)
  - Insomnia [Unknown]
  - Pruritus generalised [Recovered/Resolved]
  - Drug ineffective [Unknown]

NARRATIVE: CASE EVENT DATE: 20190419
